FAERS Safety Report 5449481-5 (Version None)
Quarter: 2007Q3

REPORT INFORMATION
  Report Type: 
  Country: None (occurrence: None)
  Receive Date: 20070907
  Receipt Date: 20070831
  Transmission Date: 20080115
  Serious: Yes (Hospitalization, Other)
  Sender: FDA-Public Use
  Company Number: 2007SP017607

PATIENT
  Age: 38 Year
  Sex: Female
  Weight: 50 kg

DRUGS (23)
  1. TEMODAL [Suspect]
     Indication: ANAPLASTIC ASTROCYTOMA
     Dosage: ; PO, 200 MG/M2; QD; PO, 200 MG/M2; QD; PO, 200 MG/M2; QD; PO, 200 MG/M2; QD; PO, 200 MG/M2; QD; PO
     Route: 048
     Dates: start: 20060902, end: 20060906
  2. TEMODAL [Suspect]
     Indication: DISEASE RECURRENCE
     Dosage: ; PO, 200 MG/M2; QD; PO, 200 MG/M2; QD; PO, 200 MG/M2; QD; PO, 200 MG/M2; QD; PO, 200 MG/M2; QD; PO
     Route: 048
     Dates: start: 20060902, end: 20060906
  3. TEMODAL [Suspect]
     Indication: ANAPLASTIC ASTROCYTOMA
     Dosage: ; PO, 200 MG/M2; QD; PO, 200 MG/M2; QD; PO, 200 MG/M2; QD; PO, 200 MG/M2; QD; PO, 200 MG/M2; QD; PO
     Route: 048
     Dates: start: 20060930, end: 20061004
  4. TEMODAL [Suspect]
     Indication: DISEASE RECURRENCE
     Dosage: ; PO, 200 MG/M2; QD; PO, 200 MG/M2; QD; PO, 200 MG/M2; QD; PO, 200 MG/M2; QD; PO, 200 MG/M2; QD; PO
     Route: 048
     Dates: start: 20060930, end: 20061004
  5. TEMODAL [Suspect]
     Indication: ANAPLASTIC ASTROCYTOMA
     Dosage: ; PO, 200 MG/M2; QD; PO, 200 MG/M2; QD; PO, 200 MG/M2; QD; PO, 200 MG/M2; QD; PO, 200 MG/M2; QD; PO
     Route: 048
     Dates: start: 20061103, end: 20061107
  6. TEMODAL [Suspect]
     Indication: DISEASE RECURRENCE
     Dosage: ; PO, 200 MG/M2; QD; PO, 200 MG/M2; QD; PO, 200 MG/M2; QD; PO, 200 MG/M2; QD; PO, 200 MG/M2; QD; PO
     Route: 048
     Dates: start: 20061103, end: 20061107
  7. TEMODAL [Suspect]
     Indication: ANAPLASTIC ASTROCYTOMA
     Dosage: ; PO, 200 MG/M2; QD; PO, 200 MG/M2; QD; PO, 200 MG/M2; QD; PO, 200 MG/M2; QD; PO, 200 MG/M2; QD; PO
     Route: 048
     Dates: start: 20061201, end: 20061205
  8. TEMODAL [Suspect]
     Indication: DISEASE RECURRENCE
     Dosage: ; PO, 200 MG/M2; QD; PO, 200 MG/M2; QD; PO, 200 MG/M2; QD; PO, 200 MG/M2; QD; PO, 200 MG/M2; QD; PO
     Route: 048
     Dates: start: 20061201, end: 20061205
  9. TEMODAL [Suspect]
     Indication: ANAPLASTIC ASTROCYTOMA
     Dosage: ; PO, 200 MG/M2; QD; PO, 200 MG/M2; QD; PO, 200 MG/M2; QD; PO, 200 MG/M2; QD; PO, 200 MG/M2; QD; PO
     Route: 048
     Dates: start: 20061228, end: 20070101
  10. TEMODAL [Suspect]
     Indication: DISEASE RECURRENCE
     Dosage: ; PO, 200 MG/M2; QD; PO, 200 MG/M2; QD; PO, 200 MG/M2; QD; PO, 200 MG/M2; QD; PO, 200 MG/M2; QD; PO
     Route: 048
     Dates: start: 20061228, end: 20070101
  11. TEMODAL [Suspect]
     Indication: ANAPLASTIC ASTROCYTOMA
     Dosage: ; PO, 200 MG/M2; QD; PO, 200 MG/M2; QD; PO, 200 MG/M2; QD; PO, 200 MG/M2; QD; PO, 200 MG/M2; QD; PO
     Route: 048
     Dates: start: 20070126, end: 20070130
  12. TEMODAL [Suspect]
     Indication: DISEASE RECURRENCE
     Dosage: ; PO, 200 MG/M2; QD; PO, 200 MG/M2; QD; PO, 200 MG/M2; QD; PO, 200 MG/M2; QD; PO, 200 MG/M2; QD; PO
     Route: 048
     Dates: start: 20070126, end: 20070130
  13. PHENOBARBITAL TAB [Suspect]
     Indication: DRUG USE FOR UNKNOWN INDICATION
     Dosage: ; PO
     Route: 048
  14. BAKTAR [Concomitant]
  15. RINDERON [Concomitant]
  16. FAMOTIDINE [Concomitant]
  17. NAVOBAN [Concomitant]
  18. MAGNESIUM OXIDE [Concomitant]
  19. PURSENNID [Concomitant]
  20. ALOSENN [Concomitant]
  21. NEW LECICARBON [Concomitant]
  22. RINDERON [Concomitant]
  23. GLYCEOL [Concomitant]

REACTIONS (10)
  - DEHYDRATION [None]
  - HEADACHE [None]
  - MUSCLE SPASMS [None]
  - NAUSEA [None]
  - NEOPLASM PROGRESSION [None]
  - NEUTROPHIL COUNT DECREASED [None]
  - PLATELET COUNT DECREASED [None]
  - PYREXIA [None]
  - VOMITING [None]
  - WHITE BLOOD CELL COUNT DECREASED [None]
